FAERS Safety Report 12413833 (Version 1)
Quarter: 2016Q2

REPORT INFORMATION
  Report Type: Spontaneous
  Country: US (occurrence: US)
  Receive Date: 20160527
  Receipt Date: 20160527
  Transmission Date: 20160815
  Serious: No
  Sender: FDA-Public Use
  Company Number: PHHY2015US175688

PATIENT
  Sex: Female

DRUGS (1)
  1. BENAZEPRIL AND HYDROCHLOROTHIAZIDE [Suspect]
     Active Substance: BENAZEPRIL HYDROCHLORIDE\HYDROCHLOROTHIAZIDE
     Indication: HYPERTENSION
     Dosage: (10 MG BENAZEPRIL, 12.5 MH HYDROCHLOROTHIAZIDE)
     Route: 065

REACTIONS (1)
  - Drug ineffective [Not Recovered/Not Resolved]
